FAERS Safety Report 4302354-3 (Version None)
Quarter: 2004Q1

REPORT INFORMATION
  Report Type: 
  Country: None (occurrence: None)
  Receive Date: 20040220
  Receipt Date: 20040129
  Transmission Date: 20041129
  Serious: Yes (Other)
  Sender: FDA-Public Use
  Company Number: A03200400288

PATIENT
  Age: 55 Year
  Sex: Male
  Weight: 124.7392 kg

DRUGS (10)
  1. PLAVIX [Suspect]
     Indication: STENT PLACEMENT
     Dosage: 75 MG QD - ORAL
     Route: 048
     Dates: start: 20030501, end: 20040101
  2. ATORVASTATIN [Concomitant]
  3. CITALOPRAM HYDROBROMIDE [Concomitant]
  4. CLONAZEPAM [Concomitant]
  5. TRAZODONE HCL [Concomitant]
  6. CLORAZEPATE DIPOTASSIUM [Concomitant]
  7. RAMIPRIL [Concomitant]
  8. INSULIN GLARGINE [Concomitant]
  9. REPAGLINIDE [Concomitant]
  10. ACETYLSALICYLIC ACID [Concomitant]

REACTIONS (5)
  - DEEP VEIN THROMBOSIS [None]
  - FATIGUE [None]
  - GAIT DISTURBANCE [None]
  - MUSCLE CRAMP [None]
  - PAIN IN EXTREMITY [None]
